FAERS Safety Report 7796290-8 (Version None)
Quarter: 2011Q4

REPORT INFORMATION
  Report Type: 
  Country: None (occurrence: None)
  Receive Date: 20111005
  Receipt Date: 20111003
  Transmission Date: 20120403
  Serious: Yes (Death)
  Sender: FDA-Public Use
  Company Number: US-BRISTOL-MYERS SQUIBB COMPANY-16092256

PATIENT
  Age: 67 Year
  Sex: Female

DRUGS (3)
  1. ABILIFY [Suspect]
     Indication: DEPRESSION
     Route: 048
     Dates: start: 20110103
  2. ZOLOFT [Suspect]
     Dosage: 1DF=100-150MG FOR SEVERAL YEARS
  3. ATIVAN [Concomitant]
     Dosage: 1DF=0.5-1 MG

REACTIONS (1)
  - CIRCULATORY COLLAPSE [None]
